FAERS Safety Report 24622457 (Version 1)
Quarter: 2024Q4

REPORT INFORMATION
  Report Type: Report from Study
  Country: AE (occurrence: AE)
  Receive Date: 20241115
  Receipt Date: 20241115
  Transmission Date: 20250115
  Serious: Yes (Hospitalization)
  Sender: ABBVIE
  Company Number: AE-ABBVIE-6003158

PATIENT
  Age: 33 Year
  Sex: Female

DRUGS (1)
  1. SKYRIZI [Suspect]
     Active Substance: RISANKIZUMAB-RZAA
     Indication: Crohn^s disease
     Route: 058
     Dates: start: 20240917, end: 20241112

REACTIONS (1)
  - Ovarian cyst [Unknown]

NARRATIVE: CASE EVENT DATE: 20240101
